FAERS Safety Report 4810390-3 (Version None)
Quarter: 2005Q4

REPORT INFORMATION
  Report Type: 
  Country: None (occurrence: None)
  Receive Date: 20051024
  Receipt Date: 20050502
  Transmission Date: 20060501
  Serious: Yes (Life-Threatening, Hospitalization)
  Sender: FDA-Public Use
  Company Number: MK200503-0313-2

PATIENT
  Age: 57 Year
  Sex: Female

DRUGS (1)
  1. OPTIRAY 320 [Suspect]
     Indication: ANGIOGRAM CEREBRAL
     Dates: start: 20050315, end: 20050315

REACTIONS (9)
  - AMNESIA [None]
  - BLOOD PRESSURE INCREASED [None]
  - CEREBRAL ARTERY EMBOLISM [None]
  - DISORIENTATION [None]
  - HEADACHE [None]
  - LOSS OF CONSCIOUSNESS [None]
  - NAUSEA [None]
  - PROCEDURAL COMPLICATION [None]
  - PYREXIA [None]
